FAERS Safety Report 12556048 (Version 1)
Quarter: 2016Q3

REPORT INFORMATION
  Report Type: Spontaneous
  Country: US (occurrence: US)
  Receive Date: 20160714
  Receipt Date: 20160714
  Transmission Date: 20161109
  Serious: No
  Sender: FDA-Public Use
  Company Number: US-BEH-2016071115

PATIENT
  Sex: Female
  Weight: 82.99 kg

DRUGS (27)
  1. CEPHALEXIN                         /00145501/ [Concomitant]
     Active Substance: CEPHALEXIN
  2. SPIRIVA [Concomitant]
     Active Substance: TIOTROPIUM BROMIDE MONOHYDRATE
  3. MUCINEX [Concomitant]
     Active Substance: GUAIFENESIN
  4. GABAPENTIN. [Concomitant]
     Active Substance: GABAPENTIN
  5. CRANBERRY                          /01512301/ [Concomitant]
     Active Substance: CRANBERRY
  6. LEVOTHYROXINE. [Concomitant]
     Active Substance: LEVOTHYROXINE
  7. MICARDIS [Concomitant]
     Active Substance: TELMISARTAN
  8. DAILY MULTIVIT-MINERALS [Concomitant]
  9. HIZENTRA [Suspect]
     Active Substance: HUMAN IMMUNOGLOBULIN G
     Indication: COR PULMONALE CHRONIC
  10. LIDOCAINE/PRILOCAINE [Concomitant]
     Active Substance: LIDOCAINE\PRILOCAINE
  11. SINGULAIR [Concomitant]
     Active Substance: MONTELUKAST SODIUM
  12. CALCIUM + VITAMIN D [Concomitant]
     Active Substance: CALCIUM\VITAMIN D
  13. XOPENEX [Concomitant]
     Active Substance: LEVALBUTEROL HYDROCHLORIDE
  14. OXYGEN. [Concomitant]
     Active Substance: OXYGEN
  15. ALLOPURINOL. [Concomitant]
     Active Substance: ALLOPURINOL
  16. HIZENTRA [Suspect]
     Active Substance: HUMAN IMMUNOGLOBULIN G
     Indication: HYPOGAMMAGLOBULINAEMIA
     Dosage: 10 G, QW
     Route: 058
  17. SILDENAFIL. [Concomitant]
     Active Substance: SILDENAFIL
  18. BREO ELLIPTA [Concomitant]
     Active Substance: FLUTICASONE FUROATE\VILANTEROL TRIFENATATE
  19. METOPROLOL SUCC ER [Concomitant]
     Active Substance: METOPROLOL SUCCINATE
  20. ACETAMINOPHEN. [Concomitant]
     Active Substance: ACETAMINOPHEN
  21. DIPHENHYDRAMINE. [Concomitant]
     Active Substance: DIPHENHYDRAMINE
  22. EPIPEN [Concomitant]
     Active Substance: EPINEPHRINE
  23. SIMVASTATIN. [Concomitant]
     Active Substance: SIMVASTATIN
  24. LANSOPRAZOLE. [Concomitant]
     Active Substance: LANSOPRAZOLE
  25. IPRATROPIUM [Concomitant]
     Active Substance: IPRATROPIUM
  26. PROBIOTIC                          /06395501/ [Concomitant]
     Active Substance: BIFIDOBACTERIUM ANIMALIS SUBSP. LACTIS
  27. IMIPRAMINE [Concomitant]
     Active Substance: IMIPRAMINE

REACTIONS (1)
  - Infusion site erythema [Unknown]
